FAERS Safety Report 5876466-7 (Version None)
Quarter: 2008Q3

REPORT INFORMATION
  Report Type: 
  Country: None (occurrence: None)
  Receive Date: 20080910
  Receipt Date: 20080905
  Transmission Date: 20090109
  Serious: Yes (Death)
  Sender: FDA-Public Use
  Company Number: A0741628A

PATIENT
  Age: 64 Year
  Sex: Male

DRUGS (5)
  1. SERETIDE [Suspect]
     Indication: ASTHMA
     Route: 048
     Dates: start: 20040101, end: 20070101
  2. COMBIVENT [Concomitant]
  3. SINGULAIR [Concomitant]
  4. HYGROTON [Concomitant]
  5. AMLODIPINE [Concomitant]

REACTIONS (1)
  - DEATH [None]
